FAERS Safety Report 5486484-9 (Version None)
Quarter: 2007Q3

REPORT INFORMATION
  Report Type: 
  Country: None (occurrence: None)
  Receive Date: 20070919
  Receipt Date: 20070726
  Transmission Date: 20080115
  Serious: No
  Sender: FDA-Public Use
  Company Number: 2007RL000337

PATIENT
  Age: 69 Year
  Sex: Male

DRUGS (3)
  1. OMACOR [Suspect]
     Indication: INFLAMMATION
     Dosage: 2 GM; BID; PO
     Route: 048
     Dates: start: 20070713
  2. L-CARNITINE [Concomitant]
  3. MAGNESIUM SULFATE [Concomitant]

REACTIONS (2)
  - NAUSEA [None]
  - OFF LABEL USE [None]
